FAERS Safety Report 11701812 (Version 1)
Quarter: 2015Q4

REPORT INFORMATION
  Report Type: Spontaneous
  Country: US (occurrence: US)
  Receive Date: 20151105
  Receipt Date: 20151105
  Transmission Date: 20160304
  Serious: No
  Sender: FDA-Public Use
  Company Number: US-MALLINCKRODT-T201503750

PATIENT
  Age: 65 Year
  Sex: Female

DRUGS (1)
  1. FENTANYL TRANSDERMAL SYSTEM [Suspect]
     Active Substance: FENTANYL
     Indication: PAIN
     Dosage: 50 MCG, Q72 HR
     Route: 062
     Dates: start: 20120823

REACTIONS (2)
  - Product tampering [Unknown]
  - Application site inflammation [Not Recovered/Not Resolved]

NARRATIVE: CASE EVENT DATE: 20150730
